FAERS Safety Report 7582342-4 (Version None)
Quarter: 2011Q2

REPORT INFORMATION
  Report Type: 
  Country: None (occurrence: None)
  Receive Date: 20110630
  Receipt Date: 20110616
  Transmission Date: 20111010
  Serious: Yes (Death)
  Sender: FDA-Public Use
  Company Number: CA-JNJFOC-20101105982

PATIENT
  Sex: Male
  Weight: 76 kg

DRUGS (19)
  1. OMEPRAZOLE [Concomitant]
  2. RHOVANE [Concomitant]
  3. VITAMIN B6 [Concomitant]
  4. MESASAL [Concomitant]
  5. TRAZODONE HCL [Concomitant]
  6. EXTRA STRENGTH TYLENOL [Concomitant]
     Dosage: 2 TABS
  7. RIFALDIN [Concomitant]
  8. FOLIC ACID [Concomitant]
  9. CALCIUM CARBONATE [Concomitant]
  10. VITAMIN D [Concomitant]
  11. SIMVASTATIN [Concomitant]
  12. ISONIAZID [Concomitant]
  13. RAMIPRIL [Concomitant]
  14. AZATHIOPRINE [Concomitant]
     Dosage: THREE TABS DAILY
  15. ATROVENT [Concomitant]
     Dosage: 4 PUFFS
  16. ZOPICLONE [Concomitant]
  17. VITAMIN B-12 [Concomitant]
     Route: 030
  18. REMICADE [Suspect]
     Indication: CROHN'S DISEASE
     Dosage: TOTAL OF 9 INFUSIONS
     Route: 042
     Dates: start: 20041101, end: 20101104
  19. SEREVENT DISK (SALMETEROL) [Concomitant]
     Dosage: ONE PUFF

REACTIONS (1)
  - DEATH [None]
